FAERS Safety Report 17994438 (Version 1)
Quarter: 2020Q3

REPORT INFORMATION
  Report Type: Spontaneous
  Country: US (occurrence: US)
  Receive Date: 20200708
  Receipt Date: 20200708
  Transmission Date: 20201103
  Serious: No
  Sender: FDA-Public Use
  Company Number: None

PATIENT

DRUGS (1)
  1. HCG (HUMAN CHORIONIC GONADOTROPIN) [Suspect]
     Active Substance: GONADOTROPHIN, CHORIONIC
     Indication: PRODUCT USED FOR UNKNOWN INDICATION
     Dosage: ?          QUANTITY:2 VIALS;OTHER FREQUENCY:TWICE WEEKLY;?
     Route: 058

REACTIONS (2)
  - Product substitution issue [None]
  - Rash [None]

NARRATIVE: CASE EVENT DATE: 20200601
